FAERS Safety Report 10173481 (Version 1)
Quarter: 2014Q2

REPORT INFORMATION
  Report Type: Spontaneous
  Country: GB (occurrence: GB)
  Receive Date: 20140515
  Receipt Date: 20140515
  Transmission Date: 20141212
  Serious: Yes (Other)
  Sender: FDA-Public Use
  Company Number: GB-TEVA-480233ISR

PATIENT
  Age: 2 Day
  Sex: 0

DRUGS (2)
  1. DIAZEPAM [Suspect]
     Dosage: 6 MILLIGRAM DAILY;
     Route: 064
  2. LAMOTRIGINE [Suspect]
     Dosage: 450 MILLIGRAM DAILY;
     Route: 064

REACTIONS (4)
  - Agitation [Recovered/Resolved]
  - Diarrhoea [Recovered/Resolved]
  - Drug withdrawal syndrome neonatal [Unknown]
  - Foetal exposure during pregnancy [Unknown]
